FAERS Safety Report 4580543-0 (Version None)
Quarter: 2005Q1

REPORT INFORMATION
  Report Type: 
  Country: None (occurrence: None)
  Receive Date: 20050127
  Receipt Date: 20040901
  Transmission Date: 20050727
  Serious: No
  Sender: FDA-Public Use
  Company Number: USA040874941

PATIENT
  Age: 9 Year
  Sex: Female
  Weight: 25 kg

DRUGS (1)
  1. STRATTERA [Suspect]
     Indication: ATTENTION DEFICIT/HYPERACTIVITY DISORDER
     Dosage: 36 MG DAY
     Dates: start: 20031001

REACTIONS (5)
  - ABNORMAL BEHAVIOUR [None]
  - ALOPECIA [None]
  - DECREASED APPETITE [None]
  - HYPOTRICHOSIS [None]
  - WEIGHT DECREASED [None]
